FAERS Safety Report 15836164 (Version 1)
Quarter: 2019Q1

REPORT INFORMATION
  Report Type: Spontaneous
  Country: US (occurrence: US)
  Receive Date: 20190117
  Receipt Date: 20190117
  Transmission Date: 20190417
  Serious: Yes (Death)
  Sender: FDA-Public Use
  Company Number: US-INSYS THERAPEUTICS, INC-INS201901-000282

PATIENT
  Age: 38 Year
  Sex: Female

DRUGS (8)
  1. METHAMPHETAMINE [Suspect]
     Active Substance: METHAMPHETAMINE
     Dates: start: 2017
  2. COCAINE [Suspect]
     Active Substance: COCAINE
     Dates: start: 2017
  3. MORPHINE [Suspect]
     Active Substance: MORPHINE
     Dates: start: 2017
  4. OXYCODONE [Suspect]
     Active Substance: OXYCODONE
     Dates: start: 2017
  5. ALCOHOL. [Suspect]
     Active Substance: ALCOHOL
     Dates: start: 2017
  6. MARIJUANA [Suspect]
     Active Substance: CANNABIS SATIVA SUBSP. INDICA TOP
     Dates: start: 2017
  7. FENTANYL. [Suspect]
     Active Substance: FENTANYL
     Indication: PRODUCT USED FOR UNKNOWN INDICATION
     Dates: start: 2017
  8. AMPHETAMINE [Suspect]
     Active Substance: AMPHETAMINE
     Dates: start: 2017

REACTIONS (2)
  - Drug abuse [Fatal]
  - Incorrect route of product administration [Unknown]

NARRATIVE: CASE EVENT DATE: 2017
